FAERS Safety Report 25387072 (Version 1)
Quarter: 2025Q2

REPORT INFORMATION
  Report Type: Report from Study
  Country: CO (occurrence: CO)
  Receive Date: 20250602
  Receipt Date: 20250602
  Transmission Date: 20250717
  Serious: Yes (Other)
  Sender: MERCK SHARP & DOHME LLC
  Company Number: CO-009507513-2410COL003062

PATIENT
  Age: 50 Year
  Sex: Male

DRUGS (4)
  1. PEMBROLIZUMAB [Suspect]
     Active Substance: PEMBROLIZUMAB
     Indication: Colorectal cancer
     Dosage: DOSE DESCRIPTION : 200 MILLIGRAM , EVERY 21 DAYS?DAILY DOSE : 9.4 MILLIGRAM?REGIMEN DOSE : 200  M...
     Route: 042
     Dates: start: 20240622, end: 20240622
  2. PEMBROLIZUMAB [Suspect]
     Active Substance: PEMBROLIZUMAB
     Indication: Colorectal cancer
     Dosage: DOSE DESCRIPTION : 200 MILLIGRAM , EVERY 21 DAYS?DAILY DOSE : 9.4 MILLIGRAM?REGIMEN DOSE : 200  M...
     Route: 042
     Dates: start: 20241002, end: 20241002
  3. OXALIPLATIN [Concomitant]
     Active Substance: OXALIPLATIN
     Indication: Colorectal cancer
     Dosage: DOSE DESCRIPTION : UNK, EVERY 21 DAYS
     Route: 042
     Dates: start: 20240622
  4. CAPECITABINE [Concomitant]
     Active Substance: CAPECITABINE
     Indication: Colorectal cancer
     Route: 048
     Dates: start: 20240622

REACTIONS (6)
  - Immunosuppression [Recovering/Resolving]
  - Influenza [Unknown]
  - Nausea [Recovered/Resolved]
  - Hypoaesthesia [Recovered/Resolved]
  - Cardiac ventriculogram [Recovering/Resolving]
  - Feeling abnormal [Not Recovered/Not Resolved]

NARRATIVE: CASE EVENT DATE: 20241001
